FAERS Safety Report 6144683-7 (Version None)
Quarter: 2009Q2

REPORT INFORMATION
  Report Type: 
  Country: None (occurrence: None)
  Receive Date: 20090406
  Receipt Date: 20090327
  Transmission Date: 20091009
  Serious: Yes (Hospitalization)
  Sender: FDA-Public Use
  Company Number: B0564288A

PATIENT
  Sex: Female

DRUGS (1)
  1. LAPATINIB [Suspect]
     Indication: BREAST CANCER
     Dosage: 1500MG PER DAY
     Route: 048
     Dates: start: 20090128, end: 20090306

REACTIONS (5)
  - HYPERSENSITIVITY [None]
  - OEDEMA PERIPHERAL [None]
  - RASH [None]
  - RASH ERYTHEMATOUS [None]
  - URTICARIA [None]
